FAERS Safety Report 17349770 (Version 7)
Quarter: 2021Q4

REPORT INFORMATION
  Report Type: Spontaneous
  Country: FR (occurrence: FR)
  Receive Date: 20200130
  Receipt Date: 20211126
  Transmission Date: 20220303
  Serious: Yes (Life-Threatening, Hospitalization, Disabling, Other)
  Sender: FDA-Public Use
  Company Number: FR-AUROBINDO-AUR-APL-2020-003634

PATIENT
  Age: 59 Year
  Sex: Female
  Weight: 76.4 kg

DRUGS (12)
  1. ESCITALOPRAM OXALATE [Suspect]
     Active Substance: ESCITALOPRAM OXALATE
     Indication: Depression
     Dosage: FROM 20 MG TO 10 MG
     Route: 048
     Dates: start: 201505, end: 201811
  2. MIRTAZAPINE [Suspect]
     Active Substance: MIRTAZAPINE
     Indication: Depression
     Dosage: 15 MILLIGRAM, DAILY
     Route: 048
     Dates: start: 20180426
  3. AMOXICILLIN [Suspect]
     Active Substance: AMOXICILLIN
     Indication: Product used for unknown indication
     Dosage: UNK
     Route: 048
  4. HYDROCHLOROTHIAZIDE\LISINOPRIL [Suspect]
     Active Substance: HYDROCHLOROTHIAZIDE\LISINOPRIL
     Indication: Product used for unknown indication
     Dosage: 20 MG/12.5 MG
     Route: 048
     Dates: start: 20171116, end: 201811
  5. IBUPROFEN [Suspect]
     Active Substance: IBUPROFEN
     Indication: Product used for unknown indication
     Dosage: UNK
     Route: 048
  6. PROPRANOLOL [Suspect]
     Active Substance: PROPRANOLOL HYDROCHLORIDE
     Indication: Product used for unknown indication
     Dosage: ONE TABLET IF NEEDED
     Dates: start: 20180813
  7. PROPRANOLOL [Suspect]
     Active Substance: PROPRANOLOL HYDROCHLORIDE
     Dosage: ONE TABLET IF NEEDED
     Dates: start: 201811
  8. OXAZEPAM [Concomitant]
     Active Substance: OXAZEPAM
     Indication: Product used for unknown indication
     Dosage: FROM 0.5 TABLET TO 1 TABLET DAILY
     Dates: start: 20180426, end: 201807
  9. REVIA [Concomitant]
     Active Substance: NALTREXONE HYDROCHLORIDE
     Indication: Product used for unknown indication
     Dosage: UNK
     Dates: start: 20170414, end: 201806
  10. CLOTIAZEPAM [Concomitant]
     Active Substance: CLOTIAZEPAM
     Indication: Product used for unknown indication
     Dosage: 0.5 TABLET IN THE MORNING, 0.5 AT NOON AND 1 TABLET IN THE EVENING
     Dates: start: 201509
  11. CLOTIAZEPAM [Concomitant]
     Active Substance: CLOTIAZEPAM
     Dosage: 0.5 TABLET IN THE MORNING, 0.5 AT NOON AND 1 TABLET IN THE EVENING
     Dates: start: 201803
  12. CLOTIAZEPAM [Concomitant]
     Active Substance: CLOTIAZEPAM
     Dosage: 0.5 TABLET IN THE MORNING, 0.5 AT NOON AND 1 TABLET IN THE EVENING
     Dates: start: 20180424

REACTIONS (23)
  - Reversible cerebral vasoconstriction syndrome [Not Recovered/Not Resolved]
  - Haemorrhagic stroke [Not Recovered/Not Resolved]
  - Extra dose administered [Unknown]
  - Hemiataxia [Not Recovered/Not Resolved]
  - Disability [Not Recovered/Not Resolved]
  - Nausea [Unknown]
  - Balance disorder [Unknown]
  - Headache [Unknown]
  - Dizziness [Unknown]
  - Paraesthesia [Unknown]
  - Hypertension [Unknown]
  - Gait disturbance [Unknown]
  - Right hemisphere deficit syndrome [Unknown]
  - Pain [Unknown]
  - Sleep apnoea syndrome [Unknown]
  - Disturbance in attention [Not Recovered/Not Resolved]
  - Dysphonia [Not Recovered/Not Resolved]
  - Disorientation [Not Recovered/Not Resolved]
  - Loss of proprioception [Not Recovered/Not Resolved]
  - Motor dysfunction [Not Recovered/Not Resolved]
  - Fatigue [Not Recovered/Not Resolved]
  - Cognitive disorder [Not Recovered/Not Resolved]
  - Memory impairment [Not Recovered/Not Resolved]

NARRATIVE: CASE EVENT DATE: 20181119
